FAERS Safety Report 6862249-8 (Version None)
Quarter: 2010Q3

REPORT INFORMATION
  Report Type: 
  Country: None (occurrence: None)
  Receive Date: 20100719
  Receipt Date: 20100702
  Transmission Date: 20110219
  Serious: Yes (Life-Threatening, Hospitalization, Other)
  Sender: FDA-Public Use
  Company Number: 2010P1000129

PATIENT
  Age: 60 Year
  Sex: Female
  Weight: 77.5651 kg

DRUGS (9)
  1. FENTANYL CITRATE [Suspect]
     Dosage: 100 MCG/HR;1 PATCH Q3D; TDER
     Route: 062
     Dates: start: 20100201
  2. PHENERGAN (PROMETHAZINE) [Concomitant]
  3. FLURAZEPAM [Concomitant]
  4. LORAZEPAM [Concomitant]
  5. MORPHINE SULFATE [Concomitant]
  6. MORPHINE SULFATE [Concomitant]
  7. ENBREL [Concomitant]
  8. DEMEROL [Concomitant]
  9. PHENOBARBITAL [Concomitant]

REACTIONS (4)
  - ABNORMAL BEHAVIOUR [None]
  - CONVULSION [None]
  - INCORRECT DOSE ADMINISTERED [None]
  - VOMITING [None]
